FAERS Safety Report 19279835 (Version 5)
Quarter: 2022Q1

REPORT INFORMATION
  Report Type: Spontaneous
  Country: US (occurrence: US)
  Receive Date: 20210520
  Receipt Date: 20220203
  Transmission Date: 20220423
  Serious: Yes (Other)
  Sender: FDA-Public Use
  Company Number: US-SA-SAC20210518000871

PATIENT
  Age: 66 Year
  Sex: Male

DRUGS (3)
  1. KEVZARA [Suspect]
     Active Substance: SARILUMAB
     Indication: Rheumatoid arthritis
     Dosage: 200 MG, QOW
     Route: 058
     Dates: start: 20170811
  2. KEVZARA [Suspect]
     Active Substance: SARILUMAB
     Dosage: 200 MG, QOW
     Route: 058
  3. LEFLUNOMIDE [Suspect]
     Active Substance: LEFLUNOMIDE
     Dosage: UNK

REACTIONS (13)
  - Arthralgia [Unknown]
  - Neuropathy peripheral [Unknown]
  - Joint swelling [Unknown]
  - Back disorder [Unknown]
  - Polyarthritis [Recovering/Resolving]
  - Condition aggravated [Recovering/Resolving]
  - Rheumatoid arthritis [Recovering/Resolving]
  - Psoriatic arthropathy [Recovering/Resolving]
  - Joint swelling [Unknown]
  - Pruritus [Unknown]
  - Burning sensation [Unknown]
  - Pain [Unknown]
  - Product use in unapproved indication [Unknown]

NARRATIVE: CASE EVENT DATE: 20170811
